FAERS Safety Report 8914814 (Version 1)
Quarter: 2012Q4

REPORT INFORMATION
  Report Type: 
  Country: HR (occurrence: HR)
  Receive Date: 20121119
  Receipt Date: 20121119
  Transmission Date: 20130627
  Serious: Yes (Other)
  Sender: FDA-Public Use
  Company Number: HR-BAYER-2012-117787

PATIENT
  Age: 22 Year
  Sex: Female

DRUGS (3)
  1. YASMIN [Suspect]
     Indication: CONTRACEPTION
     Dosage: UNK
     Route: 048
     Dates: start: 200710, end: 201110
  2. LINDYNETTE [Suspect]
     Indication: CONTRACEPTION
     Dosage: UNK
     Route: 048
     Dates: start: 201111, end: 201201
  3. AUGMENTIN [Concomitant]
     Indication: OTITIS
     Dosage: UNK

REACTIONS (2)
  - Breast cancer stage III [None]
  - HER-2 positive breast cancer [None]
